FAERS Safety Report 7018245-3 (Version None)
Quarter: 2010Q3

REPORT INFORMATION
  Report Type: 
  Country: None (occurrence: None)
  Receive Date: 20100922
  Receipt Date: 20100913
  Transmission Date: 20110219
  Serious: Yes (Other)
  Sender: FDA-Public Use
  Company Number: 018648

PATIENT
  Sex: Female

DRUGS (8)
  1. KEPPRA [Suspect]
     Indication: EPILEPSY
  2. CHEMOTHERAPEUTICS NOS (CYTOSTATICS) [Suspect]
     Indication: COLON CANCER
  3. ENALAPRIL MALEATE [Suspect]
  4. SELOKEN /00376902/ (SELOKEN) [Suspect]
  5. OMEPRAZOLE [Suspect]
  6. ACETAMINOPHEN [Concomitant]
  7. IMOVANE (IMOVANE) (NOT SPECIFIED) [Suspect]
  8. OXASCAND (OXASCAND) [Suspect]

REACTIONS (1)
  - THROMBOCYTOPENIA [None]
